FAERS Safety Report 7048075-8 (Version None)
Quarter: 2010Q4

REPORT INFORMATION
  Report Type: 
  Country: None (occurrence: None)
  Receive Date: 20101015
  Receipt Date: 20101006
  Transmission Date: 20110411
  Serious: Yes (Other)
  Sender: FDA-Public Use
  Company Number: B0679351A

PATIENT
  Sex: Female

DRUGS (2)
  1. AVANDAMET [Suspect]
     Route: 048
     Dates: start: 20090401, end: 20100928
  2. AVANDIA [Suspect]
     Route: 048
     Dates: start: 20050615, end: 20090401

REACTIONS (5)
  - CHEST DISCOMFORT [None]
  - DYSPNOEA [None]
  - GENERALISED OEDEMA [None]
  - MYALGIA [None]
  - WEIGHT INCREASED [None]
